FAERS Safety Report 13590790 (Version 1)
Quarter: 2017Q2

REPORT INFORMATION
  Report Type: Spontaneous
  Country: US (occurrence: US)
  Receive Date: 20170530
  Receipt Date: 20170530
  Transmission Date: 20170830
  Serious: Yes (Other)
  Sender: FDA-Public Use
  Company Number: US-WEST-WARD PHARMACEUTICALS CORP.-US-H14001-17-01666

PATIENT
  Age: 71 Year
  Sex: Male

DRUGS (6)
  1. CORTICOSTEROIDS [Suspect]
     Active Substance: CORTICOSTEROID NOS
     Indication: HERPES ZOSTER NECROTISING RETINOPATHY
     Route: 061
  2. VALACYCLOVIR [Suspect]
     Active Substance: VALACYCLOVIR HYDROCHLORIDE
     Route: 048
  3. TIMOLOL. [Suspect]
     Active Substance: TIMOLOL
     Indication: HERPES ZOSTER NECROTISING RETINOPATHY
     Route: 065
  4. CORTICOSTEROIDS [Suspect]
     Active Substance: CORTICOSTEROID NOS
     Route: 048
  5. FOSCARNET [Suspect]
     Active Substance: FOSCARNET
     Indication: HERPES ZOSTER NECROTISING RETINOPATHY
  6. VALACYCLOVIR [Suspect]
     Active Substance: VALACYCLOVIR HYDROCHLORIDE
     Indication: HERPES ZOSTER NECROTISING RETINOPATHY
     Route: 048

REACTIONS (2)
  - Ophthalmic herpes zoster [Unknown]
  - Pathogen resistance [Unknown]
